FAERS Safety Report 5319065-8 (Version None)
Quarter: 2007Q1

REPORT INFORMATION
  Report Type: 
  Country: None (occurrence: None)
  Receive Date: 20070202
  Receipt Date: 20061017
  Transmission Date: 20070707
  Serious: Yes (Life-Threatening)
  Sender: FDA-Public Use
  Company Number: 252723

PATIENT
  Age: 72 Year
  Sex: Male
  Weight: 97.5 kg

DRUGS (9)
  1. ANTI-DIABETICS [Suspect]
     Indication: INSULIN-REQUIRING TYPE II DIABETES MELLITUS
     Dosage: SUBCUTANEOUS
     Route: 058
     Dates: start: 20060403
  2. NOVOLOG [Suspect]
     Indication: INSULIN-REQUIRING TYPE II DIABETES MELLITUS
     Dosage: SEE IMAGE
     Route: 058
     Dates: start: 20020101, end: 20060401
  3. NOVOLOG [Suspect]
     Indication: INSULIN-REQUIRING TYPE II DIABETES MELLITUS
     Dosage: SEE IMAGE
     Route: 058
     Dates: start: 20060401
  4. SYNTHROID [Concomitant]
  5. GLUCOSAMINE (GLUCOSAMINE) [Concomitant]
  6. ALTACE [Concomitant]
  7. ACTONEL [Concomitant]
  8. MULTIVITAMINS (THIAMINE HYDROCHLORIDE, RIBOFLAVIN, RETINOL, PANTHENOL, [Concomitant]
  9. CALCIUM (CALCIUM) [Concomitant]

REACTIONS (1)
  - HYPOGLYCAEMIC COMA [None]
